FAERS Safety Report 21473905 (Version 1)
Quarter: 2022Q4

REPORT INFORMATION
  Report Type: Spontaneous
  Country: US (occurrence: US)
  Receive Date: 20221018
  Receipt Date: 20221018
  Transmission Date: 20230113
  Serious: Yes (Other)
  Sender: FDA-Public Use
  Company Number: US-FreseniusKabi-FK202214069

PATIENT
  Age: 46 Year
  Sex: Female

DRUGS (2)
  1. HYDROMORPHONE [Suspect]
     Active Substance: HYDROMORPHONE
     Indication: Neck pain
     Route: 042
  2. FENTANYL [Suspect]
     Active Substance: FENTANYL
     Indication: Neck pain
     Route: 042

REACTIONS (1)
  - Respiratory failure [Recovered/Resolved]
